FAERS Safety Report 8482718-7 (Version None)
Quarter: 2012Q3

REPORT INFORMATION
  Report Type: 
  Country: None (occurrence: None)
  Receive Date: 20120702
  Receipt Date: 20120618
  Transmission Date: 20120928
  Serious: Yes (Hospitalization)
  Sender: FDA-Public Use
  Company Number: FR-CELGENEUS-056-50794-12053218

PATIENT
  Sex: Male
  Weight: 80 kg

DRUGS (7)
  1. REVLIMID [Suspect]
     Dosage: 10 MILLIGRAM
     Route: 048
     Dates: start: 20120509, end: 20120522
  2. REVLIMID [Suspect]
     Dosage: 10 MILLIGRAM
     Route: 048
     Dates: start: 20120612
  3. VIDAZA [Suspect]
     Route: 058
     Dates: start: 20120509, end: 20120515
  4. VIDAZA [Suspect]
     Route: 058
     Dates: start: 20120612
  5. VIDAZA [Suspect]
     Route: 058
     Dates: start: 20120509, end: 20120522
  6. NEXIUM [Concomitant]
     Dosage: 40 MILLIGRAM
     Route: 048
     Dates: start: 20040101
  7. GAVISCON [Concomitant]
     Route: 048

REACTIONS (3)
  - SUBCUTANEOUS ABSCESS [None]
  - FEBRILE BONE MARROW APLASIA [None]
  - FEBRILE NEUTROPENIA [None]
